FAERS Safety Report 10688281 (Version 1)
Quarter: 2014Q4

REPORT INFORMATION
  Report Type: Spontaneous
  Country: US (occurrence: None)
  Receive Date: 20141231
  Receipt Date: 20141231
  Transmission Date: 20150529
  Serious: No
  Sender: FDA-Public Use
  Company Number: 2014-00118

PATIENT
  Age: 39 Year
  Sex: Female
  Weight: 109.77 kg

DRUGS (3)
  1. UNSPECIFIED ANTI-HYPERTENSIVE MEDICATION [Concomitant]
  2. UNSPECIFIED ORAL CHEMOTHERAPEUTIC MEDICATION [Concomitant]
  3. ZICAM COLD REMEDY RAPIDMELTS [Suspect]
     Active Substance: ZINC ACETATE ANHYDROUS\ZINC GLUCONATE
     Indication: NASOPHARYNGITIS
     Dosage: 1 PAPIDMELT ORALLY EVERY 3 HOURS?
     Route: 048
     Dates: start: 20141212, end: 20141218

REACTIONS (2)
  - Ageusia [None]
  - Anosmia [None]

NARRATIVE: CASE EVENT DATE: 20141217
